FAERS Safety Report 8304113 (Version 2)
Quarter: 2014Q1

REPORT INFORMATION
  Report Type: Spontaneous
  Country: US (occurrence: US)
  Receive Date: 20111221
  Receipt Date: 20140128
  Transmission Date: 20141002
  Serious: Yes (Other)
  Sender: FDA-Public Use
  Company Number: US-RANBAXY-2011US-51149

PATIENT
  Age: 43 Year
  Sex: Male

DRUGS (20)
  1. FLUCONAZOLE [Suspect]
     Indication: BODY TEMPERATURE INCREASED
     Dosage: UNK, UNK
     Route: 065
  2. FLUVOXAMINE [Interacting]
     Indication: PSYCHOTHERAPY
     Dosage: 100 MG, QD EVERY MORNING
     Route: 065
  3. ARSENIC TRIOXIDE [Interacting]
     Indication: ACUTE LEUKAEMIA
     Dosage: 0.15 MG/KG IV INFUSION OVER 2 H
     Route: 042
     Dates: start: 20060929
  4. ALPRAZOLAM [Concomitant]
     Indication: PSYCHOTHERAPY
     Dosage: 0.5 MG, BID
     Route: 065
  5. LORAZEPAM [Concomitant]
     Indication: ANXIETY DISORDER
     Dosage: UPTO 6 MG DAILY
     Route: 065
  6. ALLOPURINOL [Concomitant]
     Indication: PRODUCT USED FOR UNKNOWN INDICATION
     Dosage: UNK
     Route: 065
  7. CALCIUM ACETATE [Concomitant]
     Indication: PRODUCT USED FOR UNKNOWN INDICATION
     Route: 065
  8. DOCUSATE [Concomitant]
     Indication: PRODUCT USED FOR UNKNOWN INDICATION
     Dosage: UNK
     Route: 065
  9. ESOMEPRAZOLE [Concomitant]
     Indication: PRODUCT USED FOR UNKNOWN INDICATION
     Dosage: UNK
     Route: 065
  10. IPRATROPIUM/ALBUTEROL [Concomitant]
     Indication: PRODUCT USED FOR UNKNOWN INDICATION
     Dosage: UNK
     Route: 065
  11. FLUTICASONE [Concomitant]
     Indication: PRODUCT USED FOR UNKNOWN INDICATION
     Dosage: UNK
     Route: 065
  12. FLUTICASONE/SALMETEROL [Concomitant]
     Indication: PRODUCT USED FOR UNKNOWN INDICATION
     Route: 065
  13. OXYCODONE [Concomitant]
     Indication: PRODUCT USED FOR UNKNOWN INDICATION
     Route: 065
  14. POTASSIUM CHLORIDE [Concomitant]
     Indication: PRODUCT USED FOR UNKNOWN INDICATION
     Dosage: UNK
     Route: 065
  15. VERAPAMIL [Concomitant]
     Indication: PRODUCT USED FOR UNKNOWN INDICATION
     Route: 065
  16. ZOLPIDEM [Concomitant]
     Indication: PRODUCT USED FOR UNKNOWN INDICATION
     Route: 065
  17. ACYCLOVIR [Concomitant]
     Indication: BODY TEMPERATURE INCREASED
     Dosage: UNK
     Route: 065
  18. VANCOMYCIN [Concomitant]
     Indication: BODY TEMPERATURE INCREASED
     Dosage: UNK
     Route: 065
  19. AZTREONAM [Concomitant]
     Indication: BODY TEMPERATURE INCREASED
     Dosage: UNK
     Route: 065
  20. LINEZOLID [Concomitant]
     Indication: BODY TEMPERATURE INCREASED
     Route: 065

REACTIONS (7)
  - Electrocardiogram QT prolonged [Recovered/Resolved]
  - Chills [Unknown]
  - Hyperhidrosis [Unknown]
  - Tremor [Unknown]
  - Anxiety [Unknown]
  - Drug withdrawal syndrome [Recovered/Resolved]
  - Drug interaction [Recovered/Resolved]
